FAERS Safety Report 12068830 (Version 1)
Quarter: 2016Q1

REPORT INFORMATION
  Report Type: Spontaneous
  Country: US (occurrence: US)
  Receive Date: 20160211
  Receipt Date: 20160211
  Transmission Date: 20160526
  Serious: No
  Sender: FDA-Public Use
  Company Number: US-ASTRAZENECA-2016SE12000

PATIENT

DRUGS (2)
  1. AROMASIN [Suspect]
     Active Substance: EXEMESTANE
     Route: 048
  2. ARIMIDEX [Suspect]
     Active Substance: ANASTROZOLE
     Route: 048

REACTIONS (2)
  - Urticaria [Unknown]
  - Intentional product misuse [Unknown]
